FAERS Safety Report 9225978 (Version 1)
Quarter: 2013Q2

REPORT INFORMATION
  Report Type: Spontaneous
  Country: FR (occurrence: FR)
  Receive Date: 20130411
  Receipt Date: 20130411
  Transmission Date: 20140414
  Serious: Yes (Hospitalization, Other)
  Sender: FDA-Public Use
  Company Number: FR-ASTRAZENECA-2013SE21670

PATIENT
  Age: 20929 Day
  Sex: Female

DRUGS (8)
  1. INEXIUM [Suspect]
     Route: 048
     Dates: end: 20120117
  2. CELLCEPT [Suspect]
     Route: 048
     Dates: end: 20120113
  3. CELLCEPT [Suspect]
     Route: 048
     Dates: start: 20120113, end: 20120117
  4. BACTRIM FORTE [Suspect]
     Route: 048
     Dates: start: 20111028, end: 20120120
  5. ROVALCYTE [Suspect]
     Dates: end: 20120120
  6. RISPERDAL [Concomitant]
     Route: 048
  7. NEORAL [Concomitant]
  8. CORTANCYL [Concomitant]
     Route: 048

REACTIONS (5)
  - Pyrexia [Unknown]
  - Urinary tract infection [Unknown]
  - Rales [Unknown]
  - Neutropenia [Recovered/Resolved]
  - Leukopenia [Unknown]
